FAERS Safety Report 8535869-2 (Version None)
Quarter: 2012Q3

REPORT INFORMATION
  Report Type: 
  Country: None (occurrence: None)
  Receive Date: 20120725
  Receipt Date: 20120716
  Transmission Date: 20120928
  Serious: Yes (Hospitalization)
  Sender: FDA-Public Use
  Company Number: PHHY2011BR95139

PATIENT
  Sex: Female
  Weight: 84 kg

DRUGS (4)
  1. LASIX [Concomitant]
     Dosage: 0.5 DF, QD
     Route: 048
  2. ENABLEX [Suspect]
     Dosage: 1 DF PER DAY
     Route: 048
  3. ENABLEX [Suspect]
     Indication: URINARY INCONTINENCE
     Dosage: 1 DF PER DAY
     Route: 048
  4. BROMAZEPAM [Concomitant]
     Dosage: 2 DF, 1 TABLET IN THE MORNING AND 1 TABLET AT NIGHT
     Route: 048

REACTIONS (13)
  - FATIGUE [None]
  - NOCTURIA [None]
  - UTERINE CANCER [None]
  - MENSTRUATION IRREGULAR [None]
  - DYSURIA [None]
  - ASTHENIA [None]
  - HEADACHE [None]
  - BREAST CANCER [None]
  - ABASIA [None]
  - POLLAKIURIA [None]
  - DRUG INEFFECTIVE [None]
  - OVARIAN CANCER [None]
  - MICTURITION URGENCY [None]
